FAERS Safety Report 21197647 (Version 2)
Quarter: 2022Q3

REPORT INFORMATION
  Report Type: Spontaneous
  Country: CN (occurrence: CN)
  Receive Date: 20220810
  Receipt Date: 20220816
  Transmission Date: 20221027
  Serious: Yes (Other)
  Sender: FDA-Public Use
  Company Number: CN-GILEAD-2022-0592388

PATIENT
  Age: 35 Year
  Sex: Male

DRUGS (3)
  1. VEMLIDY [Suspect]
     Active Substance: TENOFOVIR ALAFENAMIDE FUMARATE
     Indication: Hepatitis B
     Dosage: 25 MG, QD
     Route: 048
     Dates: start: 20211108
  2. BIE JIA JIAN [Concomitant]
  3. TIAN QING GAN PING [Concomitant]

REACTIONS (3)
  - Drug ineffective [Not Recovered/Not Resolved]
  - Viral load increased [Recovered/Resolved]
  - Suspected counterfeit product [Not Recovered/Not Resolved]

NARRATIVE: CASE EVENT DATE: 20220601
